FAERS Safety Report 18446528 (Version 1)
Quarter: 2020Q4

REPORT INFORMATION
  Report Type: Spontaneous
  Country: US (occurrence: US)
  Receive Date: 20201030
  Receipt Date: 20201030
  Transmission Date: 20210114
  Serious: No
  Sender: FDA-Public Use
  Company Number: US-NOVOPROD-692708

PATIENT
  Age: 65 Year
  Sex: Male

DRUGS (1)
  1. TRESIBA [Suspect]
     Active Substance: INSULIN DEGLUDEC
     Indication: TYPE 2 DIABETES MELLITUS
     Dosage: 160 IU
     Route: 058
     Dates: start: 201910

REACTIONS (2)
  - Nausea [Recovered/Resolved]
  - Abdominal distension [Not Recovered/Not Resolved]
